FAERS Safety Report 20020899 (Version 1)
Quarter: 2021Q4

REPORT INFORMATION
  Report Type: Spontaneous
  Country: ES (occurrence: ES)
  Receive Date: 20211101
  Receipt Date: 20211101
  Transmission Date: 20220304
  Serious: Yes (Other)
  Sender: FDA-Public Use
  Company Number: ES-PFIZER INC-202101426141

PATIENT
  Age: 52 Year
  Sex: Female

DRUGS (6)
  1. ALPRAZOLAM [Suspect]
     Active Substance: ALPRAZOLAM
     Dosage: 100.25 MG, 1X/DAY, TAKING ONLY 50MG IN THE MORNING AND AT NIGHT AND 0.25MG AT NOON FOR 3-4 MONTHS
  2. ALPRAZOLAM [Suspect]
     Active Substance: ALPRAZOLAM
     Dosage: 0.5 G, 3X/DAY
  3. ALPRAZOLAM [Suspect]
     Active Substance: ALPRAZOLAM
     Dosage: 1 G
  4. ALPRAZOLAM [Suspect]
     Active Substance: ALPRAZOLAM
     Dosage: 2 G
     Dates: start: 1994
  5. COMIRNATY [Suspect]
     Active Substance: TOZINAMERAN
     Indication: COVID-19 immunisation
     Dosage: DOSE 2, SINGLE
  6. COMIRNATY [Suspect]
     Active Substance: TOZINAMERAN
     Dosage: DOSE 1, SINGLE

REACTIONS (9)
  - Substance dependence [Unknown]
  - Disturbance in attention [Unknown]
  - Memory impairment [Unknown]
  - Dry mouth [Unknown]
  - Cold sweat [Unknown]
  - Anxiety [Unknown]
  - Feeling cold [Unknown]
  - Paraesthesia oral [Unknown]
  - Aptyalism [Unknown]
